FAERS Safety Report 9822135 (Version 1)
Quarter: 2014Q1

REPORT INFORMATION
  Report Type: Spontaneous
  Country: FR (occurrence: FR)
  Receive Date: 20140116
  Receipt Date: 20140116
  Transmission Date: 20141002
  Serious: Yes (Hospitalization)
  Sender: FDA-Public Use
  Company Number: FR-GLAXOSMITHKLINE-B0958132A

PATIENT
  Age: 78 Year
  Sex: Female

DRUGS (3)
  1. ZINNAT [Suspect]
     Indication: ANTIBIOTIC PROPHYLAXIS
     Dosage: 750MG SINGLE DOSE
     Route: 042
     Dates: start: 20070806, end: 20070806
  2. PROTAMINE [Suspect]
     Indication: HEPARIN NEUTRALISATION THERAPY
     Dosage: 2500IU SINGLE DOSE
     Route: 042
     Dates: start: 20070806, end: 20070806
  3. NORADRENALINE [Concomitant]
     Route: 065
     Dates: start: 20070806

REACTIONS (1)
  - Hypotension [Recovered/Resolved]
